FAERS Safety Report 4499792-5 (Version None)
Quarter: 2004Q4

REPORT INFORMATION
  Report Type: 
  Country: None (occurrence: None)
  Receive Date: 20041112
  Receipt Date: 20040927
  Transmission Date: 20050328
  Serious: Yes (Other)
  Sender: FDA-Public Use
  Company Number: DE-BRISTOL-MYERS SQUIBB COMPANY-12713533

PATIENT
  Age: 37 Year
  Sex: Female
  Weight: 67 kg

DRUGS (3)
  1. ABILIFY [Suspect]
     Indication: SCHIZOPHRENIA
     Route: 048
     Dates: start: 20040806
  2. SOLIAN [Suspect]
     Indication: SCHIZOPHRENIA
     Route: 048
     Dates: start: 20040310
  3. TAVOR [Concomitant]
     Indication: ANXIETY
     Dates: start: 20040723

REACTIONS (4)
  - BLOOD PRESSURE DECREASED [None]
  - CHEST PAIN [None]
  - ELECTROCARDIOGRAM ST SEGMENT DEPRESSION [None]
  - ELECTROCARDIOGRAM T WAVE INVERSION [None]
